FAERS Safety Report 5400085-X (Version None)
Quarter: 2007Q3

REPORT INFORMATION
  Report Type: 
  Country: None (occurrence: None)
  Receive Date: 20070726
  Receipt Date: 20070726
  Transmission Date: 20080115
  Serious: Yes (Hospitalization)
  Sender: FDA-Public Use
  Company Number: None

PATIENT
  Age: 60 Year
  Sex: Female
  Weight: 54.4316 kg

DRUGS (2)
  1. CETUXIMAB - ERBITUX- BRISTOL-MYERS SQUIBB [Suspect]
     Indication: LUNG CARCINOMA CELL TYPE UNSPECIFIED STAGE IV
     Dosage: 200 MG/M2 D1,8,15,22 Q/ 28D IV DRIP
     Route: 041
     Dates: start: 20070409, end: 20070716
  2. TARCEVA [Suspect]
     Indication: LUNG CARCINOMA CELL TYPE UNSPECIFIED STAGE IV
     Dosage: 100 MG DAILY PO
     Route: 048
     Dates: start: 20070409, end: 20070720

REACTIONS (6)
  - BLOOD PRESSURE DIASTOLIC DECREASED [None]
  - BRONCHOPNEUMONIA [None]
  - DIARRHOEA [None]
  - HEART RATE INCREASED [None]
  - SPUTUM PURULENT [None]
  - VOMITING [None]
